FAERS Safety Report 13110069 (Version 1)
Quarter: 2017Q1

REPORT INFORMATION
  Report Type: Spontaneous
  Country: US (occurrence: US)
  Receive Date: 20170112
  Receipt Date: 20170112
  Transmission Date: 20170428
  Serious: No
  Sender: FDA-Public Use
  Company Number: US-ROCHE-1261969

PATIENT
  Sex: Male

DRUGS (2)
  1. CATHFLO ACTIVASE [Suspect]
     Active Substance: ALTEPLASE
     Indication: DEVICE RELATED THROMBOSIS
     Route: 065
  2. IVIG [Concomitant]
     Active Substance: HUMAN IMMUNOGLOBULIN G
     Route: 065

REACTIONS (1)
  - Thrombosis in device [Unknown]

NARRATIVE: CASE EVENT DATE: 201304
